FAERS Safety Report 16481948 (Version 1)
Quarter: 2019Q2

REPORT INFORMATION
  Report Type: Spontaneous
  Country: FR (occurrence: FR)
  Receive Date: 20190627
  Receipt Date: 20190627
  Transmission Date: 20190711
  Serious: Yes (Hospitalization)
  Sender: FDA-Public Use
  Company Number: FR-ACCORD-135211

PATIENT
  Age: 81 Year
  Sex: Male

DRUGS (3)
  1. SOLIAN [Suspect]
     Active Substance: AMISULPRIDE
     Dosage: STRENGTH: 100 MG, SCORED TABLET
     Route: 048
     Dates: start: 20190319, end: 20190320
  2. CLOZAPINE. [Suspect]
     Active Substance: CLOZAPINE
     Route: 048
     Dates: start: 20190319, end: 20190320
  3. TERALITHE [Suspect]
     Active Substance: LITHIUM CARBONATE
     Indication: BIPOLAR DISORDER
     Dosage: STRENGTH: 400 MG, BREAKABLE TABLET EXTENDED RELEASE
     Route: 048
     Dates: start: 20190319, end: 20190320

REACTIONS (3)
  - Product administration error [Unknown]
  - Disturbance in attention [Recovered/Resolved]
  - Accidental exposure to product [Unknown]

NARRATIVE: CASE EVENT DATE: 20190319
